FAERS Safety Report 6699803-2 (Version None)
Quarter: 2010Q2

REPORT INFORMATION
  Report Type: 
  Country: None (occurrence: None)
  Receive Date: 20100428
  Receipt Date: 20090831
  Transmission Date: 20101027
  Serious: No
  Sender: FDA-Public Use
  Company Number: A0829401A

PATIENT
  Sex: Female
  Weight: 58 kg

DRUGS (3)
  1. LUXIQ [Suspect]
     Route: 061
     Dates: start: 20081201
  2. ALENDRONATE SODIUM [Concomitant]
     Indication: OSTEOPOROSIS
     Route: 048
  3. HYDROXYCHLOROQUINE SULFATE [Concomitant]
     Indication: RHEUMATOID ARTHRITIS

REACTIONS (1)
  - APPLICATION SITE PAIN [None]
